FAERS Safety Report 11528551 (Version 8)
Quarter: 2015Q4

REPORT INFORMATION
  Report Type: Spontaneous
  Country: US (occurrence: US)
  Receive Date: 20150921
  Receipt Date: 20151102
  Transmission Date: 20160304
  Serious: Yes (Other)
  Sender: FDA-Public Use
  Company Number: US-PFIZER INC-2015302930

PATIENT
  Age: 36 Year
  Sex: Male
  Weight: 102 kg

DRUGS (8)
  1. EXALGO [Concomitant]
     Active Substance: HYDROMORPHONE HYDROCHLORIDE
     Indication: PAIN
     Dosage: 16 MG, UNK
  2. LYRICA [Suspect]
     Active Substance: PREGABALIN
     Indication: DEEP VEIN THROMBOSIS
     Dosage: 75 MG, 1X/DAY
  3. OXYCODONE [Concomitant]
     Active Substance: OXYCODONE
     Indication: BACK PAIN
     Dosage: 30 MG, UNK
  4. LYRICA [Suspect]
     Active Substance: PREGABALIN
     Indication: NEURALGIA
     Dosage: UNK
     Dates: start: 2013
  5. OXYCODONE [Concomitant]
     Active Substance: OXYCODONE
     Indication: PAIN IN EXTREMITY
  6. LYRICA [Suspect]
     Active Substance: PREGABALIN
     Indication: SPINAL FUSION SURGERY
     Dosage: 75 MG, 2X/DAY
     Route: 048
  7. LYRICA [Suspect]
     Active Substance: PREGABALIN
     Indication: NEUROPATHY PERIPHERAL
     Dosage: 75 MG, 2X/DAY (ONE IN THE MORNING AND ONE IN EVENING)
  8. CELEBREX [Concomitant]
     Active Substance: CELECOXIB
     Indication: SPINAL FUSION SURGERY
     Dosage: 200 MG, 1X/DAY
     Route: 048
     Dates: start: 2013

REACTIONS (7)
  - Pain [Unknown]
  - Disease progression [Not Recovered/Not Resolved]
  - Product use issue [Unknown]
  - Tibia fracture [Unknown]
  - Neuropathy peripheral [Not Recovered/Not Resolved]
  - Ankle fracture [Unknown]
  - Condition aggravated [Unknown]

NARRATIVE: CASE EVENT DATE: 2013
